FAERS Safety Report 21280527 (Version 1)
Quarter: 2022Q3

REPORT INFORMATION
  Report Type: Spontaneous
  Country: US (occurrence: US)
  Receive Date: 20220901
  Receipt Date: 20220901
  Transmission Date: 20221027
  Serious: No
  Sender: FDA-Public Use
  Company Number: US-PERRIGO-22US003471

PATIENT
  Age: 40 Year
  Sex: Female
  Weight: 113.38 kg

DRUGS (9)
  1. TRIAMCINOLONE ACETONIDE [Suspect]
     Active Substance: TRIAMCINOLONE ACETONIDE
     Indication: Nasal congestion
     Dosage: 55 TO 110 MCG IN EACH NOSTRIL, QD
     Route: 045
     Dates: start: 202002, end: 20220215
  2. TRIAMCINOLONE ACETONIDE [Suspect]
     Active Substance: TRIAMCINOLONE ACETONIDE
     Dosage: 55 MCG IN EACH NOSTRIL, QD
     Route: 045
     Dates: start: 20220216, end: 20220222
  3. TRIAMCINOLONE ACETONIDE [Suspect]
     Active Substance: TRIAMCINOLONE ACETONIDE
     Dosage: 110 MCG IN EACH NOSTRIL, QD
     Route: 045
     Dates: start: 20220223, end: 20220228
  4. TRIAMCINOLONE ACETONIDE [Suspect]
     Active Substance: TRIAMCINOLONE ACETONIDE
     Dosage: 110 MCG IN EACH NOSTRIL, BID
     Route: 045
     Dates: start: 20220301, end: 20220301
  5. TRIAMCINOLONE ACETONIDE [Suspect]
     Active Substance: TRIAMCINOLONE ACETONIDE
     Dosage: 110 MCG IN EACH NOSTRIL, SINGLE
     Route: 045
     Dates: start: 20220302, end: 20220302
  6. MONTELUKAST [Concomitant]
     Active Substance: MONTELUKAST SODIUM
     Indication: Perennial allergy
     Dosage: UNK
     Route: 065
     Dates: start: 202002
  7. QVAR [Concomitant]
     Active Substance: BECLOMETHASONE DIPROPIONATE
     Indication: Asthma
     Dosage: UNK
     Route: 065
     Dates: start: 202002
  8. ZYRTEC [Concomitant]
     Active Substance: CETIRIZINE HYDROCHLORIDE
     Indication: Perennial allergy
     Dosage: UNK
     Route: 065
     Dates: start: 202002
  9. AMLODIPINE [Concomitant]
     Active Substance: AMLODIPINE BESYLATE
     Indication: Hypertension
     Dosage: 2.5 MG
     Route: 065
     Dates: start: 202002

REACTIONS (2)
  - Drug ineffective [Unknown]
  - Expired product administered [Recovered/Resolved]

NARRATIVE: CASE EVENT DATE: 20211001
